FAERS Safety Report 25062589 (Version 1)
Quarter: 2025Q1

REPORT INFORMATION
  Report Type: Report from Study
  Country: DE (occurrence: DE)
  Receive Date: 20250311
  Receipt Date: 20250311
  Transmission Date: 20250408
  Serious: Yes (Hospitalization)
  Sender: BIOCON
  Company Number: DE-MIMS-BCONMC-12282

PATIENT

DRUGS (1)
  1. HULIO [Suspect]
     Active Substance: ADALIMUMAB-FKJP
     Indication: Product used for unknown indication
     Dosage: 40 MILLIGRAM, Q2W (AS DIRECTED)
     Route: 058

REACTIONS (1)
  - Shoulder fracture [Not Recovered/Not Resolved]

NARRATIVE: CASE EVENT DATE: 20241022
